FAERS Safety Report 18425091 (Version 1)
Quarter: 2020Q4

REPORT INFORMATION
  Report Type: Spontaneous
  Country: IT (occurrence: IT)
  Receive Date: 20201026
  Receipt Date: 20201026
  Transmission Date: 20210114
  Serious: Yes (Other)
  Sender: FDA-Public Use
  Company Number: IT-SA-2020SA289820

PATIENT

DRUGS (3)
  1. RANITIDINE. [Suspect]
     Active Substance: RANITIDINE
  2. SIMVASTATIN. [Suspect]
     Active Substance: SIMVASTATIN
  3. TERBINAFINE. [Suspect]
     Active Substance: TERBINAFINE

REACTIONS (1)
  - Subacute cutaneous lupus erythematosus [Unknown]
